FAERS Safety Report 15928079 (Version 1)
Quarter: 2019Q1

REPORT INFORMATION
  Report Type: Report from Study
  Country: GB (occurrence: GB)
  Receive Date: 20190205
  Receipt Date: 20190205
  Transmission Date: 20190417
  Serious: Yes (Other)
  Sender: FDA-Public Use
  Company Number: GB-CONCORDIA PHARMACEUTICALS INC.-GSH201901-000185

PATIENT
  Age: 59 Year
  Sex: Male

DRUGS (7)
  1. MYCOPHENOLATE MOFETIL. [Suspect]
     Active Substance: MYCOPHENOLATE MOFETIL
     Indication: COLITIS
     Route: 048
  2. PREDNISOLONE. [Suspect]
     Active Substance: PREDNISOLONE
  3. METHYLPREDNISOLONE. [Suspect]
     Active Substance: METHYLPREDNISOLONE
     Indication: COLITIS
     Route: 042
  4. PREDNISOLONE. [Suspect]
     Active Substance: PREDNISOLONE
     Dosage: DOSE INCREASED
     Route: 048
  5. PREDNISOLONE. [Suspect]
     Active Substance: PREDNISOLONE
     Indication: COLITIS
     Route: 048
  6. PREDNISOLONE. [Suspect]
     Active Substance: PREDNISOLONE
     Dosage: DOSE WAS REDUCED
     Route: 048
  7. INFLIXIMAB [Concomitant]
     Active Substance: INFLIXIMAB
     Indication: COLITIS

REACTIONS (2)
  - Condition aggravated [Recovering/Resolving]
  - Colitis [Recovering/Resolving]
